FAERS Safety Report 8348175-6 (Version None)
Quarter: 2012Q2

REPORT INFORMATION
  Report Type: 
  Country: None (occurrence: None)
  Receive Date: 20120509
  Receipt Date: 20120503
  Transmission Date: 20120825
  Serious: Yes (Hospitalization)
  Sender: FDA-Public Use
  Company Number: AU-PURDUE-USA-2012-0080865

PATIENT
  Sex: Male
  Weight: 107 kg

DRUGS (17)
  1. BUPRENORPHINE HCL [Suspect]
     Dosage: 10 MCG/HR, UNK
     Route: 062
     Dates: start: 20111028, end: 20111103
  2. LIPITOR [Concomitant]
     Indication: PRODUCT USED FOR UNKNOWN INDICATION
     Dosage: UNK
     Dates: start: 20090101
  3. BLINDED PLACEBO TRANSDERMAL PATCH [Suspect]
     Dosage: 5 MCG/HR, UNK
     Route: 062
     Dates: start: 20111018, end: 20111028
  4. BLINDED PLACEBO TRANSDERMAL PATCH [Suspect]
     Dosage: 30 MCG/HR, UNK
     Route: 062
     Dates: start: 20111108, end: 20111115
  5. BLINDED PLACEBO TRANSDERMAL PATCH [Suspect]
     Dosage: 10 MCG/HR, UNK
     Route: 062
     Dates: start: 20111028, end: 20111103
  6. BLINDED PLACEBO TRANSDERMAL PATCH [Suspect]
     Indication: PRODUCT USED FOR UNKNOWN INDICATION
     Dosage: 40 MCG/HR, UNK
     Route: 062
     Dates: start: 20111115
  7. BUPRENORPHINE HCL [Suspect]
     Dosage: 20 MCG/HR, UNK
     Route: 062
     Dates: start: 20111103, end: 20111108
  8. CYMBALTA [Concomitant]
     Indication: PRODUCT USED FOR UNKNOWN INDICATION
     Dosage: UNK
     Dates: start: 20110301
  9. BUPRENORPHINE HCL [Suspect]
     Dosage: 5 MCG/HR, UNK
     Route: 062
     Dates: start: 20111018, end: 20111028
  10. ASPIRIN [Concomitant]
     Indication: PRODUCT USED FOR UNKNOWN INDICATION
     Dosage: UNK
     Dates: start: 20111231
  11. LANTUS [Concomitant]
     Indication: PRODUCT USED FOR UNKNOWN INDICATION
     Dosage: UNK
     Dates: start: 20110901
  12. JANUMET [Concomitant]
     Indication: PRODUCT USED FOR UNKNOWN INDICATION
     Dosage: UNK
     Dates: start: 20100101
  13. BUPRENORPHINE HCL [Suspect]
     Dosage: 30 MCG/HR, UNK
     Route: 062
     Dates: start: 20111108, end: 20111115
  14. BLINDED PLACEBO TRANSDERMAL PATCH [Suspect]
     Dosage: 20 MCG/HR, UNK
     Route: 062
     Dates: start: 20111103, end: 20111108
  15. AVAPRO [Concomitant]
     Indication: PRODUCT USED FOR UNKNOWN INDICATION
     Dosage: UNK
     Dates: start: 20090101
  16. BUPRENORPHINE HCL [Suspect]
     Indication: PRODUCT USED FOR UNKNOWN INDICATION
     Dosage: 40 MCG/HR, UNK
     Route: 062
     Dates: start: 20111115
  17. EFFEXOR [Concomitant]
     Indication: PRODUCT USED FOR UNKNOWN INDICATION
     Dosage: UNK
     Dates: start: 20000101

REACTIONS (1)
  - ANGINA UNSTABLE [None]
